FAERS Safety Report 7452243-0 (Version None)
Quarter: 2011Q2

REPORT INFORMATION
  Report Type: 
  Country: None (occurrence: None)
  Receive Date: 20110502
  Receipt Date: 20110429
  Transmission Date: 20111010
  Serious: Yes (Death, Other)
  Sender: FDA-Public Use
  Company Number: VE-PFIZER INC-2011083465

PATIENT
  Age: 78 Year
  Sex: Male

DRUGS (2)
  1. LIPITOR [Suspect]
     Indication: HYPERCHOLESTEROLAEMIA
     Dosage: UNK
     Route: 048
     Dates: start: 20080101
  2. NORVASC [Suspect]
     Dosage: 5 MG, 1X/DAY

REACTIONS (2)
  - CEREBRAL INFARCTION [None]
  - CEREBRAL DISORDER [None]
